FAERS Safety Report 8073237-0 (Version None)
Quarter: 2011Q4

REPORT INFORMATION
  Report Type: 
  Country: None (occurrence: None)
  Receive Date: 20111221
  Receipt Date: 20110425
  Transmission Date: 20120403
  Serious: Yes (Hospitalization, Other)
  Sender: FDA-Public Use
  Company Number: PHHY2011US24761

PATIENT
  Age: 45 Year
  Sex: Male
  Weight: 69.4 kg

DRUGS (8)
  1. ABACAVIR [Concomitant]
  2. TOPROL-XL [Concomitant]
  3. ZOLPIDEM [Concomitant]
  4. EXJADE [Suspect]
     Indication: SICKLE CELL ANAEMIA
     Dosage: 1500 MG, QHS, ORAL
     Route: 048
  5. SUSTIVA [Concomitant]
  6. FOLIC ACID [Concomitant]
  7. FAMOTIDINE [Concomitant]
  8. SODIUM BICARBONATE IN PLASTIC CONTAINER [Concomitant]

REACTIONS (8)
  - OEDEMA PERIPHERAL [None]
  - RENAL FAILURE ACUTE [None]
  - ANAEMIA [None]
  - ASPARTATE AMINOTRANSFERASE INCREASED [None]
  - BLOOD ALKALINE PHOSPHATASE INCREASED [None]
  - BLOOD CALCIUM DECREASED [None]
  - BLOOD GLUCOSE INCREASED [None]
  - BLOOD SODIUM DECREASED [None]
